FAERS Safety Report 13350426 (Version 3)
Quarter: 2017Q2

REPORT INFORMATION
  Report Type: Spontaneous
  Country: IT (occurrence: IT)
  Receive Date: 20170320
  Receipt Date: 20170615
  Transmission Date: 20170830
  Serious: Yes (Life-Threatening)
  Sender: FDA-Public Use
  Company Number: IT-TEVA-751433ACC

PATIENT
  Age: 33 Year
  Sex: Female
  Weight: 73 kg

DRUGS (8)
  1. PACLITAXEL. [Suspect]
     Active Substance: PACLITAXEL
     Indication: CERVIX CARCINOMA
     Route: 042
     Dates: start: 20170223, end: 20170223
  2. KESTINE [Concomitant]
     Active Substance: EBASTINE
     Dates: start: 20170220, end: 20170223
  3. URBASON [Concomitant]
     Active Substance: METHYLPREDNISOLONE
     Indication: ANAPHYLAXIS PROPHYLAXIS
     Dates: start: 20170220, end: 20170223
  4. SOLDESAM [Concomitant]
     Active Substance: DEXAMETHASONE
     Indication: ANAPHYLAXIS PROPHYLAXIS
     Route: 042
     Dates: start: 20170223, end: 20170223
  5. NAVOBAN [Concomitant]
     Active Substance: TROPISETRON HYDROCHLORIDE
     Indication: PROPHYLAXIS OF NAUSEA AND VOMITING
     Route: 042
     Dates: start: 20170223, end: 20170223
  6. URBASON [Concomitant]
     Active Substance: METHYLPREDNISOLONE
     Dates: start: 20170223, end: 20170223
  7. RANITIDINE. [Concomitant]
     Active Substance: RANITIDINE
     Indication: PROPHYLAXIS AGAINST GASTROINTESTINAL ULCER
     Route: 042
     Dates: start: 20170223, end: 20170223
  8. TRIMETON [Concomitant]
     Active Substance: CHLORPHENIRAMINE MALEATE
     Indication: ANAPHYLAXIS PROPHYLAXIS
     Dates: start: 20170223, end: 20170223

REACTIONS (1)
  - Anaphylactic shock [Recovered/Resolved]

NARRATIVE: CASE EVENT DATE: 20170224
